FAERS Safety Report 19889574 (Version 1)
Quarter: 2021Q3

REPORT INFORMATION
  Report Type: Spontaneous
  Country: GB (occurrence: GB)
  Receive Date: 20210927
  Receipt Date: 20210927
  Transmission Date: 20211014
  Serious: Yes (Hospitalization)
  Sender: FDA-Public Use
  Company Number: GB-TEVA-2021-GB-1957150

PATIENT
  Age: 14 Year
  Sex: Male

DRUGS (1)
  1. SORAFENIB TOSYLATE. [Suspect]
     Active Substance: SORAFENIB TOSYLATE
     Indication: DESMOID TUMOUR
     Dosage: 400 MILLIGRAM DAILY;
     Route: 048
     Dates: start: 202009

REACTIONS (2)
  - Tuberculosis [Recovered/Resolved]
  - Iridocyclitis [Recovered/Resolved]

NARRATIVE: CASE EVENT DATE: 202011
